FAERS Safety Report 6526139-2 (Version None)
Quarter: 2010Q1

REPORT INFORMATION
  Report Type: 
  Country: None (occurrence: None)
  Receive Date: 20100104
  Receipt Date: 20091222
  Transmission Date: 20100710
  Serious: Yes (Other)
  Sender: FDA-Public Use
  Company Number: US-CELGENEUS-163-20785-09091965

PATIENT
  Sex: Male

DRUGS (3)
  1. THALOMID [Suspect]
     Indication: MULTIPLE MYELOMA
     Route: 048
     Dates: start: 20090701
  2. THALOMID [Suspect]
     Dosage: 100MG-50MG
     Route: 048
     Dates: start: 20090101, end: 20090101
  3. THALOMID [Suspect]
     Dosage: 50MG-100MG
     Route: 048
     Dates: start: 20061201

REACTIONS (1)
  - CATARACT [None]
